FAERS Safety Report 20699744 (Version 1)
Quarter: 2022Q2

REPORT INFORMATION
  Report Type: Spontaneous
  Country: US (occurrence: None)
  Receive Date: 20220409
  Receipt Date: 20220409
  Transmission Date: 20220721
  Serious: Yes (Hospitalization)
  Sender: FDA-Public Use
  Company Number: None

PATIENT
  Age: 63 Year
  Sex: Male
  Weight: 99 kg

DRUGS (18)
  1. POMALYST [Suspect]
     Active Substance: POMALIDOMIDE
     Indication: Plasma cell myeloma
     Dosage: ORAL,  21 DAYS ON 7 DAYS?
     Route: 048
     Dates: start: 20200112, end: 20220205
  2. BUPROPION [Concomitant]
     Active Substance: BUPROPION
  3. Vitamin B12a [Concomitant]
  4. ROSUVASTATIN CALCIUM [Concomitant]
     Active Substance: ROSUVASTATIN CALCIUM
  5. AMLODIPINE BESYLATE AND BENAZEPRIL HYDROCHLORIDE [Concomitant]
     Active Substance: AMLODIPINE BESYLATE\BENAZEPRIL HYDROCHLORIDE
  6. VITAMIN D [Concomitant]
     Active Substance: VITAMIN D NOS
  7. GABAPENTIN [Concomitant]
     Active Substance: GABAPENTIN
  8. Metroprolo Tartrate [Concomitant]
  9. CLOPIDOGREL [Concomitant]
     Active Substance: CLOPIDOGREL BISULFATE
  10. Multi vitamin [Concomitant]
  11. NOVOLOG [Concomitant]
     Active Substance: INSULIN ASPART
  12. Flex pen [Concomitant]
  13. TRESIBA [Concomitant]
     Active Substance: INSULIN DEGLUDEC
  14. Freestyle Libre meter [Concomitant]
  15. ACYCLOVIR [Concomitant]
     Active Substance: ACYCLOVIR
  16. PANTOPRAZOLE [Concomitant]
     Active Substance: PANTOPRAZOLE
  17. ZOMETA [Concomitant]
     Active Substance: ZOLEDRONIC ACID
  18. Prochlorpromazine [Concomitant]

REACTIONS (7)
  - Irritability [None]
  - Confusional state [None]
  - Tremor [None]
  - Anxiety [None]
  - Fatigue [None]
  - Loss of consciousness [None]
  - Dysuria [None]

NARRATIVE: CASE EVENT DATE: 20220305
